FAERS Safety Report 25566107 (Version 5)
Quarter: 2025Q3

REPORT INFORMATION
  Report Type: Spontaneous
  Country: CA (occurrence: CA)
  Receive Date: 20250716
  Receipt Date: 20250903
  Transmission Date: 20251020
  Serious: Yes (Other)
  Sender: PFIZER
  Company Number: CA-PFIZER INC-202500125193

PATIENT
  Age: 51 Year
  Sex: Female

DRUGS (5)
  1. ABRILADA [Suspect]
     Active Substance: ADALIMUMAB-AFZB
     Indication: Psoriatic arthropathy
     Route: 058
     Dates: start: 20250320
  2. ABRILADA [Suspect]
     Active Substance: ADALIMUMAB-AFZB
     Route: 058
     Dates: start: 20250612
  3. CELECOXIB [Concomitant]
     Active Substance: CELECOXIB
  4. GABAPENTIN [Concomitant]
     Active Substance: GABAPENTIN
  5. LEFLUNOMIDE [Concomitant]
     Active Substance: LEFLUNOMIDE

REACTIONS (10)
  - Foot fracture [Recovering/Resolving]
  - Crohn^s disease [Unknown]
  - Cardiac failure congestive [Unknown]
  - Condition aggravated [Not Recovered/Not Resolved]
  - Lung disorder [Unknown]
  - Haemoglobin decreased [Unknown]
  - Sinusitis [Recovered/Resolved]
  - Fall [Unknown]
  - Off label use [Unknown]
  - Off label use [Unknown]

NARRATIVE: CASE EVENT DATE: 20250101
